FAERS Safety Report 25944100 (Version 4)
Quarter: 2025Q4

REPORT INFORMATION
  Report Type: Spontaneous
  Country: EU (occurrence: EU)
  Receive Date: 20251021
  Receipt Date: 20251208
  Transmission Date: 20260118
  Serious: Yes (Other)
  Sender: NOVARTIS
  Company Number: None

PATIENT
  Age: 47 Year
  Sex: Female
  Weight: 118 kg

DRUGS (31)
  1. COSENTYX [Suspect]
     Active Substance: SECUKINUMAB
     Indication: Hidradenitis
     Dosage: 300 MG, QW
     Route: 065
     Dates: start: 202508, end: 20250910
  2. COSENTYX [Suspect]
     Active Substance: SECUKINUMAB
     Dosage: 1 DOSAGE FORM, (LONG-TERM MEDICATIONONCE A WEEK: 22.08.2025, 29.08.2025 (5 TIMES IN TOTAL), THEN ONC
     Route: 058
     Dates: start: 20250822, end: 20250926
  3. AMOXICILLIN\CLAVULANATE POTASSIUM [Concomitant]
     Active Substance: AMOXICILLIN\CLAVULANATE POTASSIUM
     Indication: Bacterial test positive
     Dosage: 1 G, Q8H, (875MG + 125MG (1-1-1))
     Route: 065
     Dates: start: 20250904, end: 20250911
  4. TRAMADOL [Concomitant]
     Active Substance: TRAMADOL
     Indication: Accident
     Dosage: 5 ML, (5ML (8 PRESSES)
     Route: 048
  5. DESMOPRESSIN ACETATE [Concomitant]
     Active Substance: DESMOPRESSIN ACETATE
     Indication: Product used for unknown indication
     Dosage: 1 DOSAGE FORM, QD, (UNDER THE TONGUE (0-0-1),60 MCG)
     Route: 060
  6. Cezera [Concomitant]
     Indication: Product used for unknown indication
     Dosage: 5 MG, QD, (1-0-0)
     Route: 065
  7. RYALTRIS [Concomitant]
     Active Substance: MOMETASONE FUROATE MONOHYDRATE\OLOPATADINE HYDROCHLORIDE
     Indication: Product used for unknown indication
     Dosage: 1 DOSAGE FORM, Q12H, (25MCG/600MCG, (2-0-2)
     Route: 065
  8. ESTRADIOL HEMIHYDRATE [Concomitant]
     Active Substance: ESTRADIOL HEMIHYDRATE
     Indication: Product used for unknown indication
     Dosage: 2 MG, QD, (0-0-1)
     Route: 065
  9. IPRATROPIUM BROMIDE [Concomitant]
     Active Substance: IPRATROPIUM BROMIDE
     Indication: Product used for unknown indication
     Dosage: 1 DOSAGE FORM, (2 BREATHS, 0,02MG/D?V)
     Route: 065
  10. MAGNESIUM CARBONATE\MAGNESIUM OXIDE [Concomitant]
     Active Substance: MAGNESIUM CARBONATE\MAGNESIUM OXIDE
     Indication: Product used for unknown indication
     Dosage: 1 DOSAGE FORM, QD, ((1-0-0), 365 MCG)
     Route: 065
  11. CONTROLOC [Concomitant]
     Active Substance: PANTOPRAZOLE SODIUM
     Indication: Product used for unknown indication
     Dosage: 40 MG, QD, (1-0-0)
     Route: 065
  12. Novalgin [Concomitant]
     Indication: Product used for unknown indication
     Dosage: 500 MG, Q8H, (1-1-1)
     Route: 048
  13. Milgamma n [Concomitant]
     Indication: Product used for unknown indication
     Dosage: 1 DOSAGE FORM, Q12H, ((1-0-1), 40MG/90MG/0,25MG)
     Route: 065
  14. NALOXONE HYDROCHLORIDE\OXYCODONE HYDROCHLORIDE [Concomitant]
     Active Substance: NALOXONE HYDROCHLORIDE\OXYCODONE HYDROCHLORIDE
     Indication: Product used for unknown indication
     Dosage: 1 DOSAGE FORM, QD, (PROLONG , (1-0-0)
     Route: 065
  15. Biofenac [Concomitant]
     Indication: Product used for unknown indication
     Dosage: 100 MG, QD, (1-0-0)
     Route: 065
  16. OXYCONTIN [Concomitant]
     Active Substance: OXYCODONE HYDROCHLORIDE
     Indication: Product used for unknown indication
     Dosage: 20 MG, QD, (PROLONG , (0-0-1)
     Route: 065
  17. PREGABALIN [Concomitant]
     Active Substance: PREGABALIN
     Indication: Product used for unknown indication
     Dosage: 75 MG, Q8H, (1-1-1)
     Route: 065
  18. CARIPRAZINE [Concomitant]
     Active Substance: CARIPRAZINE
     Indication: Product used for unknown indication
     Dosage: 1 DOSAGE FORM, QD, (0-1-0)
     Route: 065
  19. TRAZODONE HYDROCHLORIDE [Concomitant]
     Active Substance: TRAZODONE HYDROCHLORIDE
     Indication: Product used for unknown indication
     Dosage: 1 DOSAGE FORM, QD, (0-0-1/2)
     Route: 065
  20. ATARAX [Concomitant]
     Active Substance: HYDROXYZINE HYDROCHLORIDE
     Indication: Product used for unknown indication
     Dosage: 50 MG, Q8H, (2-2-2)
     Route: 048
  21. GUAIFENESIN [Concomitant]
     Active Substance: GUAIFENESIN
     Indication: Product used for unknown indication
     Dosage: 200 MG, Q8H, (1-1-1)
     Route: 048
  22. QUETIAPINE FUMARATE [Concomitant]
     Active Substance: QUETIAPINE FUMARATE
     Indication: Product used for unknown indication
     Dosage: 50 MG, QD, (PROLONG, (0-0-1)
     Route: 065
  23. LAMOTRIGINE [Concomitant]
     Active Substance: LAMOTRIGINE
     Indication: Product used for unknown indication
     Dosage: 25 MG, Q8H, (1-1-1)
     Route: 065
  24. ESTRADIOL [Concomitant]
     Active Substance: ESTRADIOL
     Indication: Product used for unknown indication
     Dosage: 1 DOSAGE FORM, Q12H, (SPRAY (1-0-1), 1,53MG/D?V)
     Route: 065
  25. Lipanthyl S [Concomitant]
     Indication: Product used for unknown indication
     Dosage: 1 DOSAGE FORM, QD, (1-0-0)
     Route: 065
  26. Melatonin vitabalans [Concomitant]
     Indication: Product used for unknown indication
     Dosage: 5 MG, QD, (0-0-1)
     Route: 048
  27. Purinol [Concomitant]
     Indication: Product used for unknown indication
     Dosage: 100 MG, QD, (1-0-0)
     Route: 065
  28. ROSUVASTATIN CALCIUM [Concomitant]
     Active Substance: ROSUVASTATIN CALCIUM
     Indication: Product used for unknown indication
     Dosage: 10 MG, QD, (1-0-0)
     Route: 065
  29. VENLAFAXINE HYDROCHLORIDE [Concomitant]
     Active Substance: VENLAFAXINE HYDROCHLORIDE
     Indication: Product used for unknown indication
     Dosage: 75 MG, QD, (1-0-0)
     Route: 065
  30. Combair [Concomitant]
     Indication: Product used for unknown indication
     Dosage: 1 DOSAGE FORM, Q12H, (1-0-1), 200MCG/6MCG/D?V)
     Route: 065
  31. DOXYCYCLINE [Concomitant]
     Active Substance: DOXYCYCLINE
     Indication: Product used for unknown indication
     Dosage: UNK
     Route: 065

REACTIONS (6)
  - Arthralgia [Recovered/Resolved]
  - Arthralgia [Recovering/Resolving]
  - Arthralgia [Not Recovered/Not Resolved]
  - Alanine aminotransferase increased [Recovering/Resolving]
  - Aspartate aminotransferase increased [Recovering/Resolving]
  - Bursitis [Recovering/Resolving]

NARRATIVE: CASE EVENT DATE: 20250801
